FAERS Safety Report 5434297-6 (Version None)
Quarter: 2007Q3

REPORT INFORMATION
  Report Type: 
  Country: None (occurrence: None)
  Receive Date: 20070829
  Receipt Date: 20070813
  Transmission Date: 20080115
  Serious: Yes (Death)
  Sender: FDA-Public Use
  Company Number: S07-AUS-03427-01

PATIENT
  Age: 56 Year
  Sex: Male

DRUGS (3)
  1. CITALOPRAM HYDROBROMIDE [Suspect]
     Dates: start: 20070101, end: 20070101
  2. CITALOPRAM HYDROBROMIDE [Suspect]
     Indication: DEPRESSION
     Dosage: 20 MG QD PO
     Route: 048
     Dates: start: 20070101, end: 20070101
  3. ALCOHOL [Suspect]

REACTIONS (2)
  - ALCOHOL POISONING [None]
  - INTENTIONAL OVERDOSE [None]
